FAERS Safety Report 9853813 (Version 4)
Quarter: 2014Q3

REPORT INFORMATION
  Report Type: Report from Study
  Country: TR (occurrence: TR)
  Receive Date: 20140129
  Receipt Date: 20140818
  Transmission Date: 20150326
  Serious: Yes (Hospitalization)
  Sender: FDA-Public Use
  Company Number: TR-ABBVIE-14P-161-1194131-00

PATIENT
  Age: 28 Year
  Sex: Male
  Weight: 63 kg

DRUGS (1)
  1. HUMIRA [Suspect]
     Active Substance: ADALIMUMAB
     Indication: ANKYLOSING SPONDYLITIS
     Route: 058
     Dates: start: 20130620, end: 20140117

REACTIONS (1)
  - Meniscus injury [Recovered/Resolved]

NARRATIVE: CASE EVENT DATE: 20140117
